FAERS Safety Report 17914122 (Version 2)
Quarter: 2020Q2

REPORT INFORMATION
  Report Type: Spontaneous
  Country: US (occurrence: US)
  Receive Date: 20200618
  Receipt Date: 20200626
  Transmission Date: 20200714
  Serious: No
  Sender: FDA-Public Use
  Company Number: US-AMGEN-USASP2020096178

PATIENT
  Age: 70 Year
  Sex: Female

DRUGS (2)
  1. ARANESP [Suspect]
     Active Substance: DARBEPOETIN ALFA
     Dosage: UNK
     Route: 065
  2. ARANESP [Suspect]
     Active Substance: DARBEPOETIN ALFA
     Indication: MALIGNANT MELANOMA
     Dosage: 200 MICROGRAM, Q2WK
     Route: 065
     Dates: start: 20150908

REACTIONS (3)
  - Gait disturbance [Unknown]
  - Neuralgia [Unknown]
  - Device breakage [Unknown]

NARRATIVE: CASE EVENT DATE: 2020
